FAERS Safety Report 9900307 (Version 2)
Quarter: 2014Q1

REPORT INFORMATION
  Report Type: Spontaneous
  Country: US (occurrence: US)
  Receive Date: 20140216
  Receipt Date: 20140220
  Transmission Date: 20141002
  Serious: No
  Sender: FDA-Public Use
  Company Number: US-009507513-1402USA007446

PATIENT
  Sex: Male

DRUGS (4)
  1. JANUMET XR [Suspect]
     Indication: WEIGHT
     Dosage: UNK
     Route: 048
  2. JANUMET XR [Suspect]
     Indication: BLOOD GLUCOSE
  3. VICTOZA [Suspect]
     Indication: WEIGHT
     Dosage: UNK
  4. VICTOZA [Suspect]
     Indication: BLOOD GLUCOSE

REACTIONS (1)
  - Vision blurred [Recovered/Resolved]
